FAERS Safety Report 6199444-X (Version None)
Quarter: 2009Q2

REPORT INFORMATION
  Report Type: 
  Country: None (occurrence: None)
  Receive Date: 20090522
  Receipt Date: 20090519
  Transmission Date: 20091009
  Serious: Yes (Other)
  Sender: FDA-Public Use
  Company Number: US-BRISTOL-MYERS SQUIBB COMPANY-14629992

PATIENT
  Age: 4 Year
  Sex: Male
  Weight: 15 kg

DRUGS (4)
  1. SPRYCEL [Suspect]
     Indication: ACUTE LYMPHOCYTIC LEUKAEMIA
     Dosage: 60MG/M2 PO QD ON DAYS 1-14,NO OF COURSES-1
     Route: 048
     Dates: start: 20090424, end: 20090430
  2. VINCRISTINE SULFATE [Suspect]
     Indication: ACUTE LYMPHOCYTIC LEUKAEMIA
     Dosage: 1.5MG/M2 IV ON DAYS 15 + 22
     Route: 042
     Dates: start: 20090424, end: 20090424
  3. DAUNORUBICIN HCL [Suspect]
     Indication: ACUTE LYMPHOCYTIC LEUKAEMIA
     Dosage: 25MG/M2 OVER 15 MINS ON DAY 15 + 22
     Route: 042
     Dates: start: 20090424, end: 20090424
  4. PREDNISONE [Suspect]
     Indication: ACUTE LYMPHOCYTIC LEUKAEMIA
     Dosage: 30MG/M2 PO BID ON DAYS 15-28
     Route: 048
     Dates: start: 20090424, end: 20090501

REACTIONS (1)
  - LYMPHOPENIA [None]
